FAERS Safety Report 4729895-9 (Version None)
Quarter: 2005Q3

REPORT INFORMATION
  Report Type: 
  Country: None (occurrence: None)
  Receive Date: 20050728
  Receipt Date: 20050721
  Transmission Date: 20060218
  Serious: Yes (Death, Life-Threatening, Hospitalization, Disabling)
  Sender: FDA-Public Use
  Company Number: 200510930BWH

PATIENT
  Age: 84 Year
  Sex: Male

DRUGS (9)
  1. AVELOX [Suspect]
     Indication: BRONCHITIS
     Dosage: 400 MG QD ORAL
     Route: 048
     Dates: start: 20050301, end: 20050309
  2. AVELOX [Suspect]
     Indication: CHRONIC OBSTRUCTIVE PULMONARY DISEASE
     Dosage: 400 MG QD ORAL
     Route: 048
     Dates: start: 20050301, end: 20050309
  3. AVELOX [Suspect]
     Indication: PNEUMONIA
     Dosage: 400 MG QD ORAL
     Route: 048
     Dates: start: 20050301, end: 20050309
  4. LISINOPRIL [Concomitant]
  5. ASPIRIN [Concomitant]
  6. COUMADIN [Concomitant]
  7. METOPROLOL [Concomitant]
  8. DILANTIN [Concomitant]
  9. DETROL [Concomitant]

REACTIONS (13)
  - AMNESIA [None]
  - ASTHENIA [None]
  - CONTUSION [None]
  - DEPRESSED LEVEL OF CONSCIOUSNESS [None]
  - DIZZINESS [None]
  - FALL [None]
  - HAEMORRHAGE [None]
  - LACERATION [None]
  - MALAISE [None]
  - PAIN [None]
  - PHARMACEUTICAL PRODUCT COMPLAINT [None]
  - SCAR [None]
  - SPINAL FRACTURE [None]
